FAERS Safety Report 7971453 (Version 3)
Quarter: 2012Q4

REPORT INFORMATION
  Report Type: 
  Country: US (occurrence: US)
  Receive Date: 20110602
  Receipt Date: 20121008
  Transmission Date: 20130627
  Serious: Yes (Life-Threatening, Hospitalization, Other)
  Sender: FDA-Public Use
  Company Number: US-ASTRAZENECA-2011SE31965

PATIENT
  Age: 55 Year
  Sex: Female
  Weight: 78.9 kg

DRUGS (30)
  1. ATENOLOL [Suspect]
     Route: 048
  2. NEXIUM [Suspect]
     Indication: GASTROOESOPHAGEAL REFLUX DISEASE
     Route: 048
     Dates: start: 2008
  3. PRILOSEC [Suspect]
     Indication: GASTROOESOPHAGEAL REFLUX DISEASE
     Route: 048
     Dates: start: 2002, end: 2007
  4. SEROQUEL [Suspect]
     Indication: BIPOLAR DISORDER
     Route: 048
     Dates: start: 2006
  5. SEROQUEL [Suspect]
     Indication: BIPOLAR DISORDER
     Route: 048
  6. XANAX [Concomitant]
     Indication: NERVOUSNESS
  7. XANAX [Concomitant]
     Indication: NERVOUSNESS
  8. XANAX [Concomitant]
     Indication: NERVOUSNESS
  9. XANAX [Concomitant]
     Indication: NERVOUSNESS
     Route: 048
     Dates: start: 20110813
  10. VICODAN [Concomitant]
  11. TRAZADONE [Concomitant]
  12. CYMBALTA [Concomitant]
     Indication: BIPOLAR DISORDER
     Dates: start: 2007
  13. CYMBALTA [Concomitant]
     Indication: BIPOLAR DISORDER
     Dates: start: 2010
  14. ZANAFLEX [Concomitant]
  15. ZANAFLEX [Concomitant]
  16. ZOVIRAX [Concomitant]
     Dosage: 400 BID
  17. GEODON [Concomitant]
  18. KLONOPIN [Concomitant]
  19. NORCO [Concomitant]
     Indication: PAIN
     Dosage: 7.5/325 ONE Q 6 H. PRN
  20. NORCO [Concomitant]
     Indication: FIBROMYALGIA
     Dosage: 7.5/325 ONE Q 6 H. PRN
  21. NORCO [Concomitant]
     Indication: PAIN
     Dosage: 10/25MG BID
     Route: 048
     Dates: start: 2006
  22. NORCO [Concomitant]
     Indication: FIBROMYALGIA
     Dosage: 10/25MG BID
     Route: 048
     Dates: start: 2006
  23. DUONEB [Concomitant]
     Dosage: ONE TREATMENT Q 4H
  24. ELAVIL [Concomitant]
  25. ASPIRIN [Concomitant]
     Dates: start: 2007
  26. O2 [Concomitant]
     Indication: LUNG DISORDER
     Dosage: 4 TO 6 LITERS NASAL CANULA, WEAN
  27. DARVOCET-N [Concomitant]
     Dosage: 100 TID
  28. MORPHINE [Concomitant]
     Indication: PAIN
     Route: 048
  29. RESCUE INHALER [Concomitant]
     Indication: ASTHMA
  30. DUAL NEUBILIZER [Concomitant]
     Indication: PNEUMONIA

REACTIONS (12)
  - Pneumonia necrotising [Unknown]
  - Sepsis syndrome [Unknown]
  - Lung abscess [Unknown]
  - Pulmonary oedema [Unknown]
  - Coagulopathy [Unknown]
  - Road traffic accident [Unknown]
  - Lung disorder [Unknown]
  - Fibromyalgia [Unknown]
  - Asthma [Unknown]
  - Pain [Unknown]
  - Dementia [Unknown]
  - Drug ineffective [Unknown]
